FAERS Safety Report 10448551 (Version 1)
Quarter: 2014Q3

REPORT INFORMATION
  Report Type: Spontaneous
  Country: TW (occurrence: TW)
  Receive Date: 20140911
  Receipt Date: 20140911
  Transmission Date: 20150326
  Serious: Yes (Other)
  Sender: FDA-Public Use
  Company Number: PHHY2014TW110878

PATIENT
  Age: 39 Year
  Sex: Female
  Weight: 63 kg

DRUGS (4)
  1. PALIPERIDONE PALMITATE [Suspect]
     Active Substance: PALIPERIDONE PALMITATE
     Indication: PSYCHOTIC DISORDER
     Dosage: 100 MG, ONCE/SINGLE
  2. PALIPERIDONE PALMITATE [Suspect]
     Active Substance: PALIPERIDONE PALMITATE
     Dosage: 100 MG,ON DAY 8
  3. HALOPERIDOL. [Suspect]
     Active Substance: HALOPERIDOL
     Indication: PSYCHOTIC DISORDER
     Dosage: 40 MG, UNK
  4. PALIPERIDONE PALMITATE [Suspect]
     Active Substance: PALIPERIDONE PALMITATE
     Dosage: 100 MG,MONTHLY INTERVALS FOR 2 MONTHS

REACTIONS (5)
  - Emotional distress [Recovered/Resolved]
  - Tardive dyskinesia [Recovered/Resolved]
  - Withdrawal syndrome [Recovered/Resolved]
  - Protrusion tongue [Recovered/Resolved]
  - Dyskinesia [Recovered/Resolved]
